FAERS Safety Report 11856103 (Version 3)
Quarter: 2016Q3

REPORT INFORMATION
  Report Type: Spontaneous
  Country: JP (occurrence: JP)
  Receive Date: 20151221
  Receipt Date: 20160711
  Transmission Date: 20161109
  Serious: Yes (Hospitalization)
  Sender: FDA-Public Use
  Company Number: JP-JNJFOC-20151214197

PATIENT
  Age: 74 Year
  Sex: Male
  Weight: 35 kg

DRUGS (10)
  1. MUCOSTA [Concomitant]
     Active Substance: REBAMIPIDE
     Indication: GASTROINTESTINAL DISORDER THERAPY
     Route: 048
     Dates: start: 201109
  2. ZYTIGA [Suspect]
     Active Substance: ABIRATERONE ACETATE
     Indication: PROSTATE CANCER
     Route: 048
     Dates: start: 20150918, end: 20151124
  3. PREDONINE [Suspect]
     Active Substance: PREDNISOLONE\PREDNISOLONE ACETATE\PREDNISOLONE SODIUM SUCCINATE
     Indication: PROSTATE CANCER
     Route: 048
     Dates: start: 20150918, end: 20151124
  4. LENDORMIN [Concomitant]
     Active Substance: BROTIZOLAM
     Indication: CONSTIPATION
     Route: 048
     Dates: start: 201109
  5. LYRICA [Concomitant]
     Active Substance: PREGABALIN
     Indication: PROSTATE CANCER
     Route: 048
     Dates: start: 20130627
  6. MUCOSTA [Concomitant]
     Active Substance: REBAMIPIDE
     Indication: PROPHYLAXIS AGAINST GASTROINTESTINAL ULCER
     Route: 048
     Dates: start: 201109
  7. LOXONIN [Suspect]
     Active Substance: LOXOPROFEN SODIUM
     Indication: PROSTATE CANCER
     Route: 048
     Dates: start: 20120126, end: 20151124
  8. ALOSENN [Concomitant]
     Active Substance: SENNA LEAF
     Indication: CONSTIPATION
     Route: 048
     Dates: start: 20120214
  9. MS CONTIN [Concomitant]
     Active Substance: MORPHINE SULFATE
     Indication: PROSTATE CANCER
     Route: 048
     Dates: start: 20111006
  10. MAGLAX [Concomitant]
     Active Substance: MAGNESIUM OXIDE
     Indication: CONSTIPATION
     Route: 048
     Dates: start: 20120214

REACTIONS (5)
  - Loss of consciousness [Recovered/Resolved]
  - Gastric ulcer [Recovered/Resolved]
  - Anaemia [Recovered/Resolved]
  - Underdose [Unknown]
  - Off label use [Unknown]

NARRATIVE: CASE EVENT DATE: 20150918
